FAERS Safety Report 9316719 (Version 3)
Quarter: 2013Q3

REPORT INFORMATION
  Report Type: Spontaneous
  Country: IT (occurrence: None)
  Receive Date: 20130523
  Receipt Date: 20130823
  Transmission Date: 20140515
  Serious: Yes (Death, Hospitalization)
  Sender: FDA-Public Use
  Company Number: AUR-APL-2013-04237

PATIENT
  Age: 61 Year
  Sex: Female

DRUGS (2)
  1. METFORMIN [Suspect]
     Indication: DIABETES MELLITUS
     Route: 048
     Dates: start: 20050101, end: 20130202
  2. DICLOFENAC (DICLOFENAC) [Suspect]
     Indication: BACK PAIN
     Dosage: (2 DOSAGE FORMS, 1 D), INTRAMUSCULAR
     Route: 030
     Dates: start: 20130129, end: 20130131

REACTIONS (17)
  - Back pain [None]
  - Metabolic acidosis [None]
  - Hypocapnia [None]
  - Platelet count abnormal [None]
  - Vasoconstriction [None]
  - Oxygen saturation decreased [None]
  - Peripheral coldness [None]
  - Anuria [None]
  - Staphylococcus test positive [None]
  - Haemofiltration [None]
  - Hyperkalaemia [None]
  - Hypertension [None]
  - Shock [None]
  - Sepsis [None]
  - Multi-organ failure [None]
  - Dehydration [None]
  - Renal impairment [None]
